FAERS Safety Report 19513341 (Version 1)
Quarter: 2021Q3

REPORT INFORMATION
  Report Type: Spontaneous
  Country: IE (occurrence: IE)
  Receive Date: 20210709
  Receipt Date: 20210709
  Transmission Date: 20211014
  Serious: Yes (Life-Threatening, Other)
  Sender: FDA-Public Use
  Company Number: IE-PFIZER INC-2021782127

PATIENT

DRUGS (4)
  1. SOLU?CORTEF [Suspect]
     Active Substance: HYDROCORTISONE SODIUM SUCCINATE
     Dosage: DILUTED IN SODIUM CHLORIDE 0.9%
     Route: 042
     Dates: start: 20210427
  2. VALOID [CYCLIZINE LACTATE] [Suspect]
     Active Substance: CYCLIZINE LACTATE
     Dosage: 50 MG, SINGLE
     Route: 042
     Dates: start: 20210427
  3. SODIUM CHLORIDE. [Suspect]
     Active Substance: SODIUM CHLORIDE
     Dosage: 0.9% W/V
     Route: 042
     Dates: start: 20210427
  4. HARTMANN^S SOLUTION [Suspect]
     Active Substance: CALCIUM CHLORIDE\POTASSIUM CHLORIDE\SODIUM CHLORIDE\SODIUM LACTATE
     Dosage: UNK
     Route: 042
     Dates: start: 20210427

REACTIONS (3)
  - Product preparation issue [Recovered/Resolved]
  - Intercepted medication error [Recovered/Resolved]
  - Product deposit [Recovered/Resolved]

NARRATIVE: CASE EVENT DATE: 20210427
